FAERS Safety Report 7855768 (Version 4)
Quarter: 2013Q4

REPORT INFORMATION
  Report Type: Spontaneous
  Country: US (occurrence: US)
  Receive Date: 20110315
  Receipt Date: 20131007
  Transmission Date: 20140711
  Serious: Yes (Hospitalization, Other)
  Sender: FDA-Public Use
  Company Number: US-US-EMD SERONO, INC.-7046598

PATIENT
  Age: 68 Year
  Sex: Female
  Weight: 50 kg

DRUGS (3)
  1. REBIF [Suspect]
     Indication: MULTIPLE SCLEROSIS
     Route: 058
     Dates: start: 20070617, end: 201011
  2. REBIF [Suspect]
     Route: 058
     Dates: start: 20110330
  3. LYRICA [Concomitant]
     Indication: MULTIPLE SCLEROSIS

REACTIONS (5)
  - Catheter site infection [Recovering/Resolving]
  - Ureteral disorder [Not Recovered/Not Resolved]
  - Large intestinal obstruction [Recovering/Resolving]
  - Renal impairment [Not Recovered/Not Resolved]
  - Gastroenteritis radiation [Recovering/Resolving]
